FAERS Safety Report 4723713-0 (Version None)
Quarter: 2005Q3

REPORT INFORMATION
  Report Type: 
  Country: None (occurrence: None)
  Receive Date: 20050725
  Receipt Date: 20050711
  Transmission Date: 20060218
  Serious: Yes (Death)
  Sender: FDA-Public Use
  Company Number: JP-JNJFOC-20041203579

PATIENT
  Age: 68 Year
  Sex: Male
  Weight: 53.8 kg

DRUGS (5)
  1. CLADRIBINE [Suspect]
     Dosage: CYCLE 5 (ADMINISTERED FOR 7 CONSECUTIVE DAYS)
     Route: 050
  2. CLADRIBINE [Suspect]
     Dosage: CYCLE 4 (ADMINISTERED FOR 7 CONSECUTIVE DAYS)
     Route: 050
  3. CLADRIBINE [Suspect]
     Dosage: CYCLE 3 (ADMINISTERED FOR 7 CONSECUTIVE DAYS)
     Route: 050
  4. CLADRIBINE [Suspect]
     Dosage: CYCLE 2 (SEVEN CONSECTIVE DAYS OF ADMINISTRATION)
     Route: 050
  5. CLADRIBINE [Suspect]
     Indication: B-CELL LYMPHOMA
     Dosage: CYCLE 1 (ADMINISTERED OVER 7 CONSECUTIVE DAYS)
     Route: 050

REACTIONS (7)
  - ASPERGILLOSIS [None]
  - CEREBRAL HAEMORRHAGE [None]
  - DISSEMINATED INTRAVASCULAR COAGULATION [None]
  - INTERSTITIAL LUNG DISEASE [None]
  - MALAISE [None]
  - PANCYTOPENIA [None]
  - PERFORMANCE STATUS DECREASED [None]
